FAERS Safety Report 5992681-6 (Version None)
Quarter: 2008Q4

REPORT INFORMATION
  Report Type: 
  Country: None (occurrence: None)
  Receive Date: 20081211
  Receipt Date: 20080527
  Transmission Date: 20090506
  Serious: No
  Sender: FDA-Public Use
  Company Number: US-AMGEN-KDL282418

PATIENT
  Sex: Male

DRUGS (2)
  1. ENBREL [Suspect]
     Indication: HEPATITIS C
  2. ENBREL [Suspect]
     Indication: DRUG USE FOR UNKNOWN INDICATION

REACTIONS (3)
  - COMPLEMENT FACTOR DECREASED [None]
  - INJECTION SITE REACTION [None]
  - RASH GENERALISED [None]
